FAERS Safety Report 12523013 (Version 1)
Quarter: 2016Q3

REPORT INFORMATION
  Report Type: Spontaneous
  Country: CH (occurrence: CH)
  Receive Date: 20160701
  Receipt Date: 20160701
  Transmission Date: 20161109
  Serious: Yes (Other)
  Sender: FDA-Public Use
  Company Number: CH-TEVA-672452ISR

PATIENT
  Age: 39 Year
  Sex: Male
  Weight: 76 kg

DRUGS (16)
  1. NOPIL FORTE TABLETTEN [Interacting]
     Active Substance: SULFAMETHOXAZOLE\TRIMETHOPRIM
     Route: 065
     Dates: start: 201501
  2. PANTOZOL [Suspect]
     Active Substance: PANTOPRAZOLE SODIUM
     Dosage: 40 MILLIGRAM DAILY; 1 DF IN THE MORNING
     Route: 065
     Dates: start: 201501
  3. SANDIMMUN [Concomitant]
     Active Substance: CYCLOSPORINE
     Dosage: 75 MILLIGRAM DAILY; STRENGTH 50 MG, 1 DF IN THE MORNING AND 0.5 DF IN THE EVENING
     Route: 065
     Dates: start: 201504
  4. NEXAVAR [Suspect]
     Active Substance: SORAFENIB
     Dosage: 800 MILLIGRAM DAILY; STRENGH 200 MG, 2 DF IN THE MORNING AND 2 DF IN THE EVENING
     Route: 065
     Dates: start: 20150324
  5. VITAMIN D3 [Concomitant]
     Active Substance: CHOLECALCIFEROL
     Dosage: 4 GTT DAILY; STRENGTH UNSPECIFIED, 4 DROPS IN THE MORNING, SINCE APPROX. MAY-2015
     Route: 065
     Dates: start: 201505
  6. CITALOPRAM [Suspect]
     Active Substance: CITALOPRAM HYDROBROMIDE
     Dosage: 20 MILLIGRAM DAILY; 1 DF IN THE MORNING
     Route: 065
     Dates: start: 201505
  7. VFEND [Suspect]
     Active Substance: VORICONAZOLE
     Dosage: 400 MILLIGRAM DAILY; 1 DF IN THE MORNING AND 1 DF IN THE EVENING
     Route: 065
     Dates: start: 20150821, end: 20150904
  8. PREDNISON [Concomitant]
     Active Substance: PREDNISONE
     Dosage: 10 MILLIGRAM DAILY;
     Route: 065
     Dates: start: 201505
  9. DAFALGAN [Concomitant]
     Active Substance: ACETAMINOPHEN
     Dosage: 1500 MILLIGRAM DAILY;
     Route: 065
  10. VFEND [Suspect]
     Active Substance: VORICONAZOLE
     Route: 065
     Dates: start: 20150715, end: 20150820
  11. VALTREX [Suspect]
     Active Substance: VALACYCLOVIR HYDROCHLORIDE
     Dosage: 1000 MILLIGRAM DAILY; 1 DF IN THE MORNING AND 1 DF IN THE EVENING
     Route: 065
     Dates: start: 201501
  12. CIPROXIN [Suspect]
     Active Substance: CIPROFLOXACIN
     Indication: ANTIBIOTIC PROPHYLAXIS
     Route: 065
     Dates: start: 20150821
  13. MAGNESIOCARD [Concomitant]
     Active Substance: MAGNESIUM ASPARTATE HYDROCHLORIDE
     Dosage: 30 MILLIMOL DAILY;
     Route: 065
     Dates: start: 201505
  14. AUGMENTIN [Concomitant]
     Active Substance: AMOXICILLIN\CLAVULANATE POTASSIUM
     Indication: ANTIBIOTIC PROPHYLAXIS
     Route: 065
     Dates: start: 20150821
  15. VFEND [Suspect]
     Active Substance: VORICONAZOLE
     Dosage: 400 MILLIGRAM DAILY; 1 DF IN THE MORNING AND 1 DF IN THE EVENING
     Route: 065
     Dates: start: 20150516, end: 20150714
  16. SUPRADYN [Concomitant]
     Active Substance: ASCORBIC ACID\MINERALS\VITAMINS
     Dosage: 1 DOSAGE FORMS DAILY;
     Route: 065
     Dates: start: 201501

REACTIONS (7)
  - Drug interaction [Unknown]
  - Infection [Unknown]
  - Dysarthria [Recovered/Resolved]
  - Photosensitivity reaction [Unknown]
  - Rash [Unknown]
  - Drug level increased [Recovered/Resolved]
  - Graft versus host disease in skin [Unknown]

NARRATIVE: CASE EVENT DATE: 201502
